FAERS Safety Report 23831049 (Version 2)
Quarter: 2024Q2

REPORT INFORMATION
  Report Type: Spontaneous
  Country: IN (occurrence: IN)
  Receive Date: 20240508
  Receipt Date: 20240624
  Transmission Date: 20240716
  Serious: Yes (Other)
  Sender: FDA-Public Use
  Company Number: IN-PFIZER INC-PV202300209977

PATIENT
  Age: 65 Year
  Sex: Female
  Weight: 52 kg

DRUGS (2)
  1. LORLATINIB [Suspect]
     Active Substance: LORLATINIB
     Dosage: 100 MG, 1X/DAY
     Route: 048
     Dates: start: 20231006
  2. SPIRONOLACTONE\TORSEMIDE [Concomitant]
     Active Substance: SPIRONOLACTONE\TORSEMIDE
     Dosage: UNK

REACTIONS (9)
  - Blood pressure increased [Not Recovered/Not Resolved]
  - Acute febrile neutrophilic dermatosis [Recovering/Resolving]
  - Oedema peripheral [Unknown]
  - Haemoglobin decreased [Not Recovered/Not Resolved]
  - Blood glucose increased [Unknown]
  - Blood sodium decreased [Unknown]
  - Oedema [Unknown]
  - Blood thyroid stimulating hormone increased [Unknown]
  - Blood cholesterol increased [Unknown]

NARRATIVE: CASE EVENT DATE: 20231125
